FAERS Safety Report 12983639 (Version 1)
Quarter: 2016Q4

REPORT INFORMATION
  Report Type: Report from Study
  Country: US (occurrence: US)
  Receive Date: 20161129
  Receipt Date: 20161129
  Transmission Date: 20170207
  Serious: Yes (Hospitalization)
  Sender: FDA-Public Use
  Company Number: US-PFIZER INC-2016502720

PATIENT
  Age: 23 Year
  Sex: Male
  Weight: 104 kg

DRUGS (12)
  1. ASPIRIN. [Concomitant]
     Active Substance: ASPIRIN
     Dosage: UNK
  2. MOTRIN [Suspect]
     Active Substance: IBUPROFEN
     Indication: INFLAMMATION
     Dosage: 400 MG, EVERY 6 HOURS, AS NEEDED(PRN)
     Route: 048
     Dates: start: 20150512
  3. TYLENOL [Concomitant]
     Active Substance: ACETAMINOPHEN
     Indication: PAIN
     Dosage: 650 MG, EVERY 4 HOURS AS NEEDED (PRN)
     Route: 048
     Dates: start: 20150512
  4. CARBAMAZEPINE. [Suspect]
     Active Substance: CARBAMAZEPINE
     Indication: SEIZURE
     Dosage: 500 MG, 2X/DAY (BID)
     Route: 048
     Dates: start: 20150512
  5. PANTOPRAZOLE [Concomitant]
     Active Substance: PANTOPRAZOLE SODIUM
     Indication: DYSPEPSIA
     Dosage: 40 MG, DAILY
     Route: 048
     Dates: start: 20150512
  6. IMODIUM MULTI-SYMPTOM RELIEF [Concomitant]
     Active Substance: DIMETHICONE\LOPERAMIDE HYDROCHLORIDE
     Indication: TOXICITY TO VARIOUS AGENTS
     Dosage: UNK UNK, AS NEEDED
     Dates: start: 20150512
  7. LOSARTAN. [Concomitant]
     Active Substance: LOSARTAN
     Indication: BLOOD PRESSURE ABNORMAL
     Dosage: 75 MG, DAILY
     Route: 048
     Dates: start: 20150512
  8. DOXYCYCLINE HYCLATE. [Suspect]
     Active Substance: DOXYCYCLINE HYCLATE
     Indication: BACTERIAL INFECTION
     Dosage: 100 MG, 2X/DAY BID
     Route: 048
     Dates: start: 20150512
  9. MOTRIN [Suspect]
     Active Substance: IBUPROFEN
     Indication: PAIN
  10. ACETAMINOPHEN-OXYCODONE [Concomitant]
     Indication: PAIN
     Dosage: [OXYCODONE HYDROCHLORIDE 7.5 MG]/[ PARACETAMOL 325 MG], 1 TAB, EVERY 4 HOURS, AS NEEDED
     Route: 048
     Dates: start: 20150512
  11. PD-325,901 [Suspect]
     Active Substance: INVESTIGATIONAL PRODUCT
     Indication: NEUROFIBROMATOSIS
     Dosage: 4 MG, 2X/DAY
     Route: 048
     Dates: start: 20150512, end: 20161026
  12. BACLOFEN. [Concomitant]
     Active Substance: BACLOFEN
     Indication: MYALGIA
     Dosage: 1.5 TABLETS (30 MG), 3X/DAY (TID)
     Route: 048
     Dates: start: 20150512

REACTIONS (4)
  - Diarrhoea [Recovered/Resolved]
  - Anaemia [Not Recovered/Not Resolved]
  - Rectal haemorrhage [Recovered/Resolved]
  - Abdominal pain [Recovered/Resolved]

NARRATIVE: CASE EVENT DATE: 20161026
